FAERS Safety Report 6013081-9 (Version None)
Quarter: 2008Q4

REPORT INFORMATION
  Report Type: 
  Country: None (occurrence: None)
  Receive Date: 20081219
  Receipt Date: 20081211
  Transmission Date: 20090506
  Serious: Yes (Hospitalization)
  Sender: FDA-Public Use
  Company Number: US-ELI_LILLY_AND_COMPANY-US200809000891

PATIENT
  Sex: Female
  Weight: 67.12 kg

DRUGS (5)
  1. BYETTA [Suspect]
     Indication: TYPE 2 DIABETES MELLITUS
     Dosage: 5 UG, 2/D
     Route: 058
     Dates: start: 20060406, end: 20070530
  2. BYETTA [Suspect]
     Dosage: 10 UG, 2/D
     Route: 058
     Dates: start: 20070530, end: 20070723
  3. BYETTA [Suspect]
     Dosage: 5 UG, 2/D
     Route: 058
     Dates: start: 20070723, end: 20080902
  4. VYTORIN [Concomitant]
     Dates: start: 20060202
  5. LISINOPRIL [Concomitant]
     Dosage: 10 MG, UNK
     Dates: start: 20070910

REACTIONS (6)
  - ABDOMINAL PAIN UPPER [None]
  - GALLBLADDER OPERATION [None]
  - HYPERLIPIDAEMIA [None]
  - NAUSEA [None]
  - PANCREATITIS [None]
  - WEIGHT DECREASED [None]
